FAERS Safety Report 5611843-0 (Version None)
Quarter: 2008Q1

REPORT INFORMATION
  Report Type: 
  Country: None (occurrence: None)
  Receive Date: 20080128
  Receipt Date: 20080114
  Transmission Date: 20080703
  Serious: Yes (Hospitalization)
  Sender: FDA-Public Use
  Company Number: MEDI-0006443

PATIENT
  Age: 14 Month
  Sex: Male
  Weight: 8.2 kg

DRUGS (6)
  1. SYNAGIS [Suspect]
     Indication: ANTIVIRAL PROPHYLAXIS
     Dosage: 122 MG, INTRAMUSCULAR, 124 MG, INTRAMUSCULAR, 123 MG, INTRAMUSCULAR
     Route: 030
     Dates: start: 20071123, end: 20071214
  2. SYNAGIS [Suspect]
     Indication: ANTIVIRAL PROPHYLAXIS
     Dosage: 122 MG, INTRAMUSCULAR, 124 MG, INTRAMUSCULAR, 123 MG, INTRAMUSCULAR
     Route: 030
     Dates: start: 20071123
  3. SYNAGIS [Suspect]
     Indication: ANTIVIRAL PROPHYLAXIS
     Dosage: 122 MG, INTRAMUSCULAR, 124 MG, INTRAMUSCULAR, 123 MG, INTRAMUSCULAR
     Route: 030
     Dates: start: 20080111
  4. DOMPERIDONE (DOMPERIDONE) [Concomitant]
  5. OMEPRAZOLE [Concomitant]
  6. IRON (IRON) [Concomitant]

REACTIONS (2)
  - LOWER RESPIRATORY TRACT INFECTION [None]
  - RESPIRATORY DISTRESS [None]
